FAERS Safety Report 6716104-4 (Version None)
Quarter: 2010Q2

REPORT INFORMATION
  Report Type: 
  Country: None (occurrence: None)
  Receive Date: 20100507
  Receipt Date: 20100503
  Transmission Date: 20101027
  Serious: Yes (Life-Threatening, Hospitalization)
  Sender: FDA-Public Use
  Company Number: D0067123A

PATIENT
  Sex: Female
  Weight: 55 kg

DRUGS (4)
  1. VIANI [Suspect]
     Indication: ASTHMA
     Dosage: 450MCG PER DAY
     Route: 055
     Dates: start: 20090301
  2. VITAMIN TAB [Concomitant]
     Route: 065
  3. ACC LONG [Concomitant]
     Indication: ASTHMA
     Route: 065
  4. MAGNESIUM [Concomitant]
     Route: 065

REACTIONS (5)
  - ASTHENIA [None]
  - CEREBRAL HAEMORRHAGE [None]
  - DIZZINESS [None]
  - MUSCULAR WEAKNESS [None]
  - MYALGIA [None]
